FAERS Safety Report 7498908-6 (Version None)
Quarter: 2011Q2

REPORT INFORMATION
  Report Type: 
  Country: None (occurrence: None)
  Receive Date: 20110524
  Receipt Date: 20110512
  Transmission Date: 20111010
  Serious: Yes (Hospitalization, Other)
  Sender: FDA-Public Use
  Company Number: JP-JNJFOC-20110500092

PATIENT
  Sex: Female

DRUGS (3)
  1. LEVOFLOXACIN [Suspect]
     Indication: INFECTION
     Dosage: 500 MG/ 100ML
     Route: 041
     Dates: start: 20110329, end: 20110405
  2. LEVOFLOXACIN [Suspect]
     Indication: PYELONEPHRITIS ACUTE
     Dosage: 500 MG/ 100ML
     Route: 041
     Dates: start: 20110329, end: 20110405
  3. LACTEC-G [Concomitant]
     Indication: PYELONEPHRITIS ACUTE
     Route: 065
     Dates: start: 20110330, end: 20110411

REACTIONS (2)
  - CONFUSIONAL STATE [None]
  - DELIRIUM [None]
